FAERS Safety Report 7662325-6 (Version None)
Quarter: 2011Q3

REPORT INFORMATION
  Report Type: 
  Country: None (occurrence: None)
  Receive Date: 20110805
  Receipt Date: 20101230
  Transmission Date: 20111222
  Serious: No
  Sender: FDA-Public Use
  Company Number: US-ABBOTT-11P-163-0694576-00

PATIENT
  Sex: Male

DRUGS (1)
  1. NIASPAN [Suspect]
     Indication: DYSLIPIDAEMIA
     Dosage: 1 HOUR BEFORE BEDTIME
     Route: 048
     Dates: start: 20101220, end: 20101223

REACTIONS (4)
  - PRURITUS [None]
  - FLUSHING [None]
  - FEELING HOT [None]
  - INSOMNIA [None]
